FAERS Safety Report 4744239-4 (Version None)
Quarter: 2005Q3

REPORT INFORMATION
  Report Type: 
  Country: None (occurrence: None)
  Receive Date: 20050809
  Receipt Date: 20050801
  Transmission Date: 20060218
  Serious: No
  Sender: FDA-Public Use
  Company Number: STA-AE-05-024

PATIENT
  Age: 72 Year
  Sex: Male

DRUGS (3)
  1. CAPTOPRIL [Suspect]
     Indication: CARDIAC DISORDER
  2. ENALAPRIL [Suspect]
     Indication: CARDIAC DISORDER
  3. CILAZAPRIL [Suspect]
     Indication: CARDIAC DISORDER

REACTIONS (12)
  - ANAEMIA [None]
  - AORTIC VALVE STENOSIS [None]
  - AZOTAEMIA [None]
  - BLOOD CREATININE INCREASED [None]
  - BLOOD PRESSURE SYSTOLIC INCREASED [None]
  - CAROTID ARTERY DISEASE [None]
  - DECREASED APPETITE [None]
  - GASTROINTESTINAL CARCINOMA [None]
  - HAEMODIALYSIS [None]
  - HYPERKALAEMIA [None]
  - RENAL ISCHAEMIA [None]
  - WEIGHT DECREASED [None]
